FAERS Safety Report 6736677-5 (Version None)
Quarter: 2010Q2

REPORT INFORMATION
  Report Type: 
  Country: None (occurrence: None)
  Receive Date: 20100521
  Receipt Date: 20100510
  Transmission Date: 20101027
  Serious: Yes (Other)
  Sender: FDA-Public Use
  Company Number: PHHY2010US30738

PATIENT
  Sex: Female

DRUGS (3)
  1. FANAPT [Suspect]
     Dosage: 1 MG 2X/DAY
     Route: 048
  2. FANAPT [Suspect]
     Dosage: 2 MG 2X/DAY
     Route: 048
  3. FANAPT [Suspect]
     Dosage: 4 MG 2X/DAY
     Route: 048

REACTIONS (7)
  - DRY EYE [None]
  - DRY MOUTH [None]
  - DYSARTHRIA [None]
  - EYE MOVEMENT DISORDER [None]
  - FIBROMYALGIA [None]
  - GAIT DISTURBANCE [None]
  - HYPOAESTHESIA [None]
